FAERS Safety Report 7081203-7 (Version None)
Quarter: 2010Q4

REPORT INFORMATION
  Report Type: 
  Country: None (occurrence: None)
  Receive Date: 20101102
  Receipt Date: 20101102
  Transmission Date: 20110411
  Serious: Yes (Life-Threatening)
  Sender: FDA-Public Use
  Company Number: None

PATIENT
  Age: 78 Year
  Sex: Female
  Weight: 63.05 kg

DRUGS (2)
  1. MIDAZOLAM HCL [Suspect]
     Indication: ANAESTHESIA
     Dosage: 2MG X1 IV DRIP
     Route: 041
     Dates: start: 20100723, end: 20100723
  2. FENTANYL [Suspect]
     Indication: ANAESTHESIA
     Dosage: 100MCG X1 IV DRIP
     Route: 041
     Dates: start: 20100723, end: 20100723

REACTIONS (1)
  - RESPIRATORY ARREST [None]
